FAERS Safety Report 11498497 (Version 1)
Quarter: 2015Q3

REPORT INFORMATION
  Report Type: Spontaneous
  Country: TW (occurrence: TW)
  Receive Date: 20150911
  Receipt Date: 20150911
  Transmission Date: 20151125
  Serious: Yes (Other)
  Sender: FDA-Public Use
  Company Number: TW-BRISTOL-MYERS SQUIBB COMPANY-BMS-2015-060721

PATIENT
  Age: 15 Year
  Sex: Female

DRUGS (1)
  1. WARFARIN SODIUM. [Suspect]
     Active Substance: WARFARIN SODIUM
     Indication: SEGMENTED HYALINISING VASCULITIS
     Dosage: 1.65 MG, QD
     Route: 065

REACTIONS (2)
  - Protein S decreased [Recovered/Resolved]
  - Skin necrosis [Recovered/Resolved]
